FAERS Safety Report 18734549 (Version 1)
Quarter: 2021Q1

REPORT INFORMATION
  Report Type: Spontaneous
  Country: US (occurrence: US)
  Receive Date: 20210112
  Receipt Date: 20210112
  Transmission Date: 20210419
  Serious: Yes (Other)
  Sender: FDA-Public Use
  Company Number: None

PATIENT
  Age: 29 Year
  Sex: Male
  Weight: 81 kg

DRUGS (2)
  1. OSTEO?BI FLEX TRIPLE STRENGTH [Concomitant]
  2. FINASTERIDE. [Suspect]
     Active Substance: FINASTERIDE
     Indication: ALOPECIA

REACTIONS (4)
  - Ejaculation disorder [None]
  - Sexual dysfunction [None]
  - Suicidal ideation [None]
  - Libido decreased [None]

NARRATIVE: CASE EVENT DATE: 20110103
